FAERS Safety Report 17945380 (Version 1)
Quarter: 2020Q2

REPORT INFORMATION
  Report Type: Spontaneous
  Country: DE (occurrence: DE)
  Receive Date: 20200625
  Receipt Date: 20200625
  Transmission Date: 20200714
  Serious: Yes (Congenital Anomaly, Other)
  Sender: FDA-Public Use
  Company Number: NVSC2020DE172563

PATIENT
  Age: 1 Year
  Sex: Male

DRUGS (5)
  1. PREDNISOLONE. [Suspect]
     Active Substance: PREDNISOLONE
     Indication: FOETAL EXPOSURE DURING PREGNANCY
     Dosage: MATERNAL DOSE - 10 MG, QD (10 [MG/D (BIS 5) ]/ SOMETIMES 10 MG/D, SOMETIMES 5 MG/D.)
     Route: 064
     Dates: start: 20190224, end: 20191122
  2. DEKRISTOL [Concomitant]
     Active Substance: CHOLECALCIFEROL
     Indication: FOETAL EXPOSURE DURING PREGNANCY
     Dosage: UNK (20000 [I.E./D (1X/WK) ])
     Route: 064
  3. SODIUM FOLINATE [Concomitant]
     Active Substance: LEUCOVORIN
     Indication: FOETAL EXPOSURE DURING PREGNANCY
     Route: 064
  4. ORENCIA [Suspect]
     Active Substance: ABATACEPT
     Indication: FOETAL EXPOSURE DURING PREGNANCY
     Dosage: MATERNAL DOSE - 125 MG, QW (162 [MG/WK ])
     Route: 064
     Dates: start: 20190224, end: 20190326
  5. OMEPRAZOL [Concomitant]
     Active Substance: OMEPRAZOLE
     Indication: FOETAL EXPOSURE DURING PREGNANCY
     Dosage: MATERNAL DOSE - UNK (40 [MG/D ])
     Route: 064

REACTIONS (4)
  - Foetal exposure during pregnancy [Unknown]
  - Renal aplasia [Not Recovered/Not Resolved]
  - Inguinal hernia [Unknown]
  - Atrial septal defect [Unknown]
